FAERS Safety Report 20040425 (Version 1)
Quarter: 2021Q4

REPORT INFORMATION
  Report Type: Spontaneous
  Country: US (occurrence: None)
  Receive Date: 20211105
  Receipt Date: 20211105
  Transmission Date: 20220303
  Serious: Yes (Hospitalization, Other)
  Sender: FDA-Public Use
  Company Number: None

PATIENT
  Sex: Female

DRUGS (9)
  1. CAPECITABINE [Suspect]
     Active Substance: CAPECITABINE
     Indication: Breast cancer
     Dosage: OTHER QUANTITY : 1000MG/1500MG;?FREQUENCY : TWICE A DAY;?
     Route: 048
     Dates: start: 20210616
  2. HYDORCHOROTHIAZIDE [Concomitant]
  3. XARELTO [Concomitant]
     Active Substance: RIVAROXABAN
  4. XGEVA [Concomitant]
     Active Substance: DENOSUMAB
  5. OXYCODONE [Concomitant]
     Active Substance: OXYCODONE
  6. FLUVESRANT [Concomitant]
  7. PROPRANOLOLER [Concomitant]
  8. AMLODIPINE [Concomitant]
     Active Substance: AMLODIPINE BESYLATE
  9. OLMESARTAN [Concomitant]
     Active Substance: OLMESARTAN

REACTIONS (1)
  - Emergency care [None]
